FAERS Safety Report 7495431-X (Version None)
Quarter: 2011Q2

REPORT INFORMATION
  Report Type: 
  Country: None (occurrence: None)
  Receive Date: 20110513
  Receipt Date: 20110505
  Transmission Date: 20111010
  Serious: Yes (Hospitalization)
  Sender: FDA-Public Use
  Company Number: WAES 1103USA03631

PATIENT
  Age: 32 Year

DRUGS (10)
  1. SCOPEX [Concomitant]
  2. FERROUSSO4 [Concomitant]
  3. HYDROCORTISONE ACETATE [Concomitant]
  4. ASCORBIC ACID [Concomitant]
  5. LOPINAVIR/RITONAVIR [Suspect]
     Indication: HIV INFECTION
     Dates: start: 20110208
  6. BACTRIM [Concomitant]
  7. REHIDRAT [Concomitant]
  8. PRODIUM (LOPERAMIDE HYDROCHLORIDE) [Concomitant]
  9. ISENTRESS [Suspect]
     Indication: HIV INFECTION
     Dosage: 1 TAB/BID/PO
     Route: 048
     Dates: start: 20110208
  10. FOLIC ACID [Concomitant]

REACTIONS (1)
  - GASTROENTERITIS [None]
